FAERS Safety Report 9155422 (Version 1)
Quarter: 2013Q1

REPORT INFORMATION
  Report Type: Report from Study
  Country: US (occurrence: US)
  Receive Date: 20130311
  Receipt Date: 20130311
  Transmission Date: 20140127
  Serious: Yes (Other)
  Sender: FDA-Public Use
  Company Number: US-ABBOTT-13P-163-1058755-00

PATIENT
  Sex: Male

DRUGS (1)
  1. HUMIRA [Suspect]
     Indication: COLITIS ULCERATIVE
     Route: 058
     Dates: start: 201211, end: 201301

REACTIONS (6)
  - Defaecation urgency [Not Recovered/Not Resolved]
  - Ureteric injury [Recovered/Resolved]
  - Abdominal pain [Recovering/Resolving]
  - Colitis [Recovered/Resolved]
  - Nephrolithiasis [Recovered/Resolved]
  - Drug ineffective [Not Recovered/Not Resolved]
